FAERS Safety Report 5206365-5 (Version None)
Quarter: 2007Q1

REPORT INFORMATION
  Report Type: 
  Country: None (occurrence: None)
  Receive Date: 20070111
  Receipt Date: 20070104
  Transmission Date: 20070707
  Serious: Yes (Hospitalization, Other)
  Sender: FDA-Public Use
  Company Number: US-PFIZER INC-2005171956

PATIENT
  Sex: Male
  Weight: 108.9 kg

DRUGS (5)
  1. VIAGRA [Suspect]
     Indication: ERECTILE DYSFUNCTION
  2. NICOTIANA TABACUM [Suspect]
  3. INSULIN [Concomitant]
     Route: 065
  4. ALL OTHER THERAPEUTIC PRODUCTS [Concomitant]
     Route: 065
  5. METHADONE HCL [Concomitant]
     Route: 065

REACTIONS (3)
  - CORONARY ARTERY OCCLUSION [None]
  - DRUG EFFECT DECREASED [None]
  - MYOPATHY [None]
